FAERS Safety Report 25402148 (Version 1)
Quarter: 2025Q2

REPORT INFORMATION
  Report Type: Spontaneous
  Country: GB (occurrence: GB)
  Receive Date: 20250605
  Receipt Date: 20250605
  Transmission Date: 20250716
  Serious: Yes (Other)
  Sender: PFIZER
  Company Number: GB-MHRA-35768336

PATIENT
  Age: 79 Year
  Sex: Male

DRUGS (1)
  1. LEVETIRACETAM [Suspect]
     Active Substance: LEVETIRACETAM
     Dosage: 500 MG, 2X/DAY (EVERY 12 HOURS)

REACTIONS (9)
  - Depression [Unknown]
  - Contusion [Recovering/Resolving]
  - Skin exfoliation [Unknown]
  - Rash papular [Recovering/Resolving]
  - Rash macular [Recovering/Resolving]
  - Alopecia [Unknown]
  - Anger [Unknown]
  - Rash pruritic [Recovering/Resolving]
  - Pollakiuria [Unknown]
